FAERS Safety Report 23317393 (Version 2)
Quarter: 2025Q2

REPORT INFORMATION
  Report Type: Spontaneous
  Country: US (occurrence: US)
  Receive Date: 20231219
  Receipt Date: 20250514
  Transmission Date: 20250717
  Serious: No
  Sender: ROCHE
  Company Number: US-ROCHE-3300782

PATIENT
  Age: 14 Year
  Sex: Male

DRUGS (3)
  1. HEMLIBRA [Suspect]
     Active Substance: EMICIZUMAB-KXWH
     Indication: Factor VIII deficiency
     Dosage: TOTAL DOSE 126 MG (1.4 ML)
     Route: 042
     Dates: start: 202212
  2. HEMLIBRA [Suspect]
     Active Substance: EMICIZUMAB-KXWH
     Dosage: STRENGTH: 30MG/ML
     Route: 042
     Dates: start: 202212
  3. HEMLIBRA [Suspect]
     Active Substance: EMICIZUMAB-KXWH
     Dosage: STRENGTH: 150MG/ML
     Route: 042
     Dates: start: 201207

REACTIONS (4)
  - Haemorrhage [Unknown]
  - Haemorrhage [Recovered/Resolved]
  - Muscle spasms [Unknown]
  - Arthralgia [Unknown]

NARRATIVE: CASE EVENT DATE: 20230221
